FAERS Safety Report 9701880 (Version 1)
Quarter: 2013Q4

REPORT INFORMATION
  Report Type: Spontaneous
  Country: GR (occurrence: GR)
  Receive Date: 20131121
  Receipt Date: 20131121
  Transmission Date: 20140711
  Serious: Yes (Other)
  Sender: FDA-Public Use
  Company Number: GR-UCBSA-103530

PATIENT
  Sex: Female

DRUGS (2)
  1. NEUPRO [Suspect]
     Indication: RESTLESS LEGS SYNDROME
     Route: 062
     Dates: start: 201311, end: 201311
  2. SALOSPIR [Concomitant]
     Indication: THROMBOCYTOSIS
     Route: 048

REACTIONS (1)
  - Subcutaneous haematoma [Recovered/Resolved]
